FAERS Safety Report 9388381 (Version 1)
Quarter: 2013Q3

REPORT INFORMATION
  Report Type: Spontaneous
  Country: US (occurrence: US)
  Receive Date: 20130708
  Receipt Date: 20130708
  Transmission Date: 20140515
  Serious: No
  Sender: FDA-Public Use
  Company Number: US-ASTRAZENECA-2013SE47173

PATIENT
  Age: 73 Year
  Sex: Female
  Weight: 80.7 kg

DRUGS (9)
  1. SYMBICORT [Suspect]
     Indication: CHRONIC OBSTRUCTIVE PULMONARY DISEASE
     Dosage: 160 2 PUFFS BID
     Route: 055
     Dates: start: 20130525
  2. SYMBICORT [Suspect]
     Indication: BRONCHIECTASIS
     Dosage: 160 2 PUFFS BID
     Route: 055
     Dates: start: 20130525
  3. BYSTOLIC [Concomitant]
     Indication: HYPERTENSION
     Dosage: 10 MG
     Route: 048
  4. LOSARTAN HCTZ [Concomitant]
     Indication: HYPERTENSION
     Dosage: 50 MG 12.5
     Route: 048
  5. MELOXICAM [Concomitant]
     Indication: ARTHRITIS
     Route: 048
     Dates: start: 201301
  6. LIPITOR [Concomitant]
     Indication: BLOOD CHOLESTEROL
     Route: 048
     Dates: end: 20130613
  7. BABY ASPIRIN [Concomitant]
     Dosage: DAILY
     Route: 048
  8. VITAMIN D [Concomitant]
     Route: 048
  9. CALCIUM [Concomitant]
     Route: 048

REACTIONS (3)
  - Myalgia [Unknown]
  - Myalgia [Unknown]
  - Arthralgia [Unknown]
